FAERS Safety Report 11861004 (Version 1)
Quarter: 2015Q4

REPORT INFORMATION
  Report Type: Spontaneous
  Country: BR (occurrence: BR)
  Receive Date: 20151222
  Receipt Date: 20151222
  Transmission Date: 20160305
  Serious: Yes (Hospitalization)
  Sender: FDA-Public Use
  Company Number: BR-ASTRAZENECA-2015SF26652

PATIENT
  Age: 796 Month
  Sex: Female
  Weight: 67 kg

DRUGS (8)
  1. HYDROCHLOROTHIAZIDE. [Suspect]
     Active Substance: HYDROCHLOROTHIAZIDE
     Indication: BLOOD PRESSURE ABNORMAL
     Route: 048
  2. SELOZOK [Suspect]
     Active Substance: METOPROLOL SUCCINATE
     Indication: BLOOD PRESSURE ABNORMAL
     Route: 048
  3. LABEL [Concomitant]
     Indication: GASTRIC HAEMORRHAGE
     Route: 048
     Dates: start: 201504
  4. SELOPRESS [Suspect]
     Active Substance: HYDROCHLOROTHIAZIDE\METOPROLOL TARTRATE
     Indication: BLOOD PRESSURE ABNORMAL
     Dosage: EVERY DAY
     Route: 048
  5. NEXIUM [Suspect]
     Active Substance: ESOMEPRAZOLE MAGNESIUM
     Indication: GASTRIC HAEMORRHAGE
     Route: 048
     Dates: start: 201509
  6. NORIPURUM [Concomitant]
     Active Substance: IRON POLYMALTOSE
     Indication: GASTRIC HAEMORRHAGE
     Dosage: EVERY DAY
     Route: 048
     Dates: start: 201504
  7. FORTEN [Concomitant]
     Indication: GASTRIC HAEMORRHAGE
     Dosage: EVERY DAY
     Route: 048
     Dates: start: 201504
  8. NEXIUM [Suspect]
     Active Substance: ESOMEPRAZOLE MAGNESIUM
     Indication: GASTRIC HAEMORRHAGE
     Route: 048
     Dates: start: 201504, end: 201509

REACTIONS (6)
  - Blood pressure increased [Recovered/Resolved]
  - Gastric polyps [Unknown]
  - Swelling [Recovered/Resolved]
  - Gastric haemorrhage [Recovered/Resolved]
  - Drug ineffective [Recovered/Resolved]
  - Blood iron decreased [Recovered/Resolved]

NARRATIVE: CASE EVENT DATE: 201504
